FAERS Safety Report 6328685-3 (Version None)
Quarter: 2009Q3

REPORT INFORMATION
  Report Type: 
  Country: None (occurrence: None)
  Receive Date: 20090826
  Receipt Date: 20090818
  Transmission Date: 20100115
  Serious: Yes (Other)
  Sender: FDA-Public Use
  Company Number: PHHY2009BR35075

PATIENT
  Sex: Male

DRUGS (1)
  1. DIOVAN AMLO FIX [Suspect]

REACTIONS (4)
  - ABASIA [None]
  - MUSCULAR WEAKNESS [None]
  - NERVOUSNESS [None]
  - OEDEMA PERIPHERAL [None]
